FAERS Safety Report 18597602 (Version 1)
Quarter: 2020Q4

REPORT INFORMATION
  Report Type: Spontaneous
  Country: US (occurrence: US)
  Receive Date: 20201209
  Receipt Date: 20201209
  Transmission Date: 20210114
  Serious: No
  Sender: FDA-Public Use
  Company Number: US-SUNOVION-2020SUN003586

PATIENT
  Age: 83 Year
  Sex: Male

DRUGS (2)
  1. APOMORPHINE [Suspect]
     Active Substance: APOMORPHINE
     Dosage: UNK
     Route: 065
  2. KYNMOBI [Suspect]
     Active Substance: APOMORPHINE HYDROCHLORIDE
     Dosage: 10 MG
     Route: 060

REACTIONS (2)
  - Rhinorrhoea [Unknown]
  - Yawning [Unknown]
